FAERS Safety Report 6357058-2 (Version None)
Quarter: 2009Q3

REPORT INFORMATION
  Report Type: 
  Country: None (occurrence: None)
  Receive Date: 20090915
  Receipt Date: 20090909
  Transmission Date: 20100115
  Serious: Yes (Hospitalization, Other)
  Sender: FDA-Public Use
  Company Number: US-GENENTECH-290193

PATIENT
  Sex: Female
  Weight: 77.27 kg

DRUGS (12)
  1. TRASTUZUMAB [Suspect]
     Indication: BREAST CANCER
     Dosage: UNK
     Dates: end: 20090805
  2. DOCETAXEL [Suspect]
     Indication: BREAST CANCER
     Dosage: UNK
     Route: 042
     Dates: end: 20090805
  3. CARBOPLATIN [Suspect]
     Indication: BREAST CANCER
     Dosage: UNK
     Dates: end: 20090805
  4. DOLASETRON MESYLATE [Concomitant]
     Indication: PREMEDICATION
     Dosage: UNK
  5. LORAZEPAM [Concomitant]
     Indication: PREMEDICATION
     Dosage: UNK
  6. BENADRYL [Concomitant]
     Indication: PREMEDICATION
     Dosage: UNK
  7. CIMETIDINE [Concomitant]
     Indication: PREMEDICATION
     Dosage: UNK
  8. DECADRON [Concomitant]
     Indication: PREMEDICATION
     Dosage: UNK
  9. VITAMINS [Concomitant]
     Indication: DRUG USE FOR UNKNOWN INDICATION
     Dosage: UNK
  10. CALCIUM [Concomitant]
     Indication: DRUG USE FOR UNKNOWN INDICATION
     Dosage: UNK
  11. GINSENG [Concomitant]
     Indication: DRUG USE FOR UNKNOWN INDICATION
     Dosage: UNK
  12. GINGER [Concomitant]
     Indication: NAUSEA
     Dosage: UNK

REACTIONS (3)
  - GASTROINTESTINAL NECROSIS [None]
  - HYPERSENSITIVITY [None]
  - SEPSIS [None]
